FAERS Safety Report 20670813 (Version 5)
Quarter: 2022Q3

REPORT INFORMATION
  Report Type: Report from Study
  Country: US (occurrence: US)
  Receive Date: 20220404
  Receipt Date: 20220726
  Transmission Date: 20221027
  Serious: No
  Sender: FDA-Public Use
  Company Number: US-NOVARTISTESTPH-NVSC2022US075872

PATIENT
  Age: 40 Year
  Sex: Female

DRUGS (1)
  1. KESIMPTA [Suspect]
     Active Substance: OFATUMUMAB
     Indication: Relapsing multiple sclerosis
     Dosage: 20 MG, QW
     Route: 058
     Dates: start: 20220331

REACTIONS (9)
  - Pain [Recovered/Resolved]
  - Dyspepsia [Recovering/Resolving]
  - Dizziness [Recovered/Resolved]
  - Headache [Not Recovered/Not Resolved]
  - Chills [Recovering/Resolving]
  - Nausea [Recovered/Resolved]
  - Respiratory disorder [Not Recovered/Not Resolved]
  - Device defective [Not Recovered/Not Resolved]
  - Accidental exposure to product [Unknown]

NARRATIVE: CASE EVENT DATE: 20220331
